FAERS Safety Report 10356613 (Version 2)
Quarter: 2014Q3

REPORT INFORMATION
  Report Type: Spontaneous
  Country: CN (occurrence: CN)
  Receive Date: 20140801
  Receipt Date: 20140919
  Transmission Date: 20150326
  Serious: Yes (Life-Threatening, Hospitalization, Other)
  Sender: FDA-Public Use
  Company Number: CN-NOVOPROD-417308

PATIENT
  Age: 43 Year
  Sex: Female
  Weight: 60 kg

DRUGS (6)
  1. INSULIN INJECTION [Concomitant]
     Active Substance: INSULIN NOS
     Indication: TYPE 2 DIABETES MELLITUS
     Dosage: UNK
  2. METFORMIN [Concomitant]
     Active Substance: METFORMIN HYDROCHLORIDE
     Indication: DIABETES MELLITUS
     Dosage: UNK
     Route: 065
  3. NOVOLIN N [Suspect]
     Active Substance: INSULIN HUMAN
     Indication: TYPE 2 DIABETES MELLITUS
     Dosage: UNK
     Route: 065
  4. NOVOMIX 30 [Suspect]
     Active Substance: INSULIN ASPART
     Indication: TYPE 2 DIABETES MELLITUS
     Dosage: UNK
     Route: 065
  5. NOVOMIX 30 [Suspect]
     Active Substance: INSULIN ASPART
     Dosage: 1500 U, SINGLE
     Route: 058
     Dates: start: 201301, end: 201301
  6. NOVOLIN N [Suspect]
     Active Substance: INSULIN HUMAN
     Dosage: 300 IU, SINGLE
     Route: 058
     Dates: start: 201301

REACTIONS (4)
  - Suicide attempt [Unknown]
  - Suicidal ideation [Unknown]
  - Intentional overdose [Unknown]
  - Hypoglycaemic coma [Recovered/Resolved]

NARRATIVE: CASE EVENT DATE: 201301
